FAERS Safety Report 11253180 (Version 1)
Quarter: 2015Q3

REPORT INFORMATION
  Report Type: Spontaneous
  Country: UA (occurrence: UA)
  Receive Date: 20150709
  Receipt Date: 20150709
  Transmission Date: 20151125
  Serious: Yes (Hospitalization)
  Sender: FDA-Public Use
  Company Number: UA-ASTRAZENECA-2015SE64956

PATIENT
  Age: 53 Year
  Sex: Male
  Weight: 90 kg

DRUGS (1)
  1. FORXIGA [Suspect]
     Active Substance: DAPAGLIFLOZIN
     Indication: TYPE 2 DIABETES MELLITUS
     Route: 048
     Dates: start: 20150205, end: 20150305

REACTIONS (1)
  - Ketonuria [Recovered/Resolved]

NARRATIVE: CASE EVENT DATE: 20150219
